FAERS Safety Report 12375909 (Version 1)
Quarter: 2016Q2

REPORT INFORMATION
  Report Type: Spontaneous
  Country: US (occurrence: US)
  Receive Date: 20160517
  Receipt Date: 20160517
  Transmission Date: 20160815
  Serious: No
  Sender: FDA-Public Use
  Company Number: US-RELYPSA-RLY2016000075

PATIENT

DRUGS (20)
  1. TRIAMCINOLONE ACETONIDE. [Concomitant]
     Active Substance: TRIAMCINOLONE ACETONIDE
  2. VITAMIN D3 [Concomitant]
     Active Substance: CHOLECALCIFEROL
     Dosage: 4000 MG, BID
  3. NIFEDIPINE. [Concomitant]
     Active Substance: NIFEDIPINE
  4. FISH OIL [Concomitant]
     Active Substance: FISH OIL
  5. TAMSULOSIN HCL [Concomitant]
     Active Substance: TAMSULOSIN
  6. LUTEIN                             /01638501/ [Concomitant]
     Active Substance: LUTEIN
  7. VESICARE [Concomitant]
     Active Substance: SOLIFENACIN SUCCINATE
  8. COREG [Concomitant]
     Active Substance: CARVEDILOL
  9. BENADRYL [Concomitant]
     Active Substance: DIPHENHYDRAMINE HYDROCHLORIDE
  10. ZEAXANTHIN [Concomitant]
     Active Substance: ZEAXANTHIN
  11. TURMERIC                           /01079602/ [Concomitant]
     Active Substance: TURMERIC
  12. COCONUT OIL [Concomitant]
     Active Substance: COCONUT OIL
  13. VELTASSA [Suspect]
     Active Substance: PATIROMER
     Indication: HYPERKALAEMIA
     Dosage: 8.4 GM, QD
     Route: 048
     Dates: start: 201602
  14. VITAMIN E                          /00110501/ [Concomitant]
     Active Substance: TOCOPHEROL
  15. VITAMIN C [Concomitant]
     Active Substance: ASCORBIC ACID
  16. VITAMIN B12 [Concomitant]
     Active Substance: CYANOCOBALAMIN
  17. LISINOPRIL. [Concomitant]
     Active Substance: LISINOPRIL
  18. CLINDAMYCIN HCL [Concomitant]
     Active Substance: CLINDAMYCIN HYDROCHLORIDE
  19. MAGNESIUM [Concomitant]
     Active Substance: MAGNESIUM
     Dosage: 500 MG, UNK
  20. ELIQUIS [Concomitant]
     Active Substance: APIXABAN

REACTIONS (1)
  - Diarrhoea [Not Recovered/Not Resolved]

NARRATIVE: CASE EVENT DATE: 201602
